FAERS Safety Report 12970944 (Version 2)
Quarter: 2016Q4

REPORT INFORMATION
  Report Type: Spontaneous
  Country: US (occurrence: US)
  Receive Date: 20161123
  Receipt Date: 20161128
  Transmission Date: 20170207
  Serious: No
  Sender: FDA-Public Use
  Company Number: US-JAZZ-2016-US-018929

PATIENT
  Sex: Female

DRUGS (44)
  1. VITAMIN B [Concomitant]
     Active Substance: VITAMIN B
  2. XYREM [Suspect]
     Active Substance: SODIUM OXYBATE
     Dosage: DOSE ADJUSTMENTS
     Route: 048
     Dates: start: 200902, end: 201012
  3. CELLCEPT [Concomitant]
     Active Substance: MYCOPHENOLATE MOFETIL\MYCOPHENOLATE MOFETIL HYDROCHLORIDE
  4. DAYTRANA [Concomitant]
     Active Substance: METHYLPHENIDATE
  5. LEVONORGESTREL + ETINILESTRADIOL [Concomitant]
  6. NORCO [Concomitant]
     Active Substance: ACETAMINOPHEN\HYDROCODONE BITARTRATE
  7. OMEGA 3                            /01333901/ [Concomitant]
     Active Substance: FISH OIL\TOCOPHEROL
  8. VICODIN ES [Concomitant]
     Active Substance: ACETAMINOPHEN\HYDROCODONE BITARTRATE
  9. WELLBUTRIN [Concomitant]
     Active Substance: BUPROPION HYDROCHLORIDE
  10. ZETONNA [Concomitant]
     Active Substance: CICLESONIDE
  11. ZOLOFT [Concomitant]
     Active Substance: SERTRALINE HYDROCHLORIDE
  12. AMLODIPINE BESYLATE. [Concomitant]
     Active Substance: AMLODIPINE BESYLATE
  13. COLESTIPOL HCL [Concomitant]
     Active Substance: COLESTIPOL HYDROCHLORIDE
  14. ETODOLAC. [Concomitant]
     Active Substance: ETODOLAC
  15. IMURAN [Concomitant]
     Active Substance: AZATHIOPRINE
  16. LOESTRIN NOS [Concomitant]
     Active Substance: ETHINYL ESTRADIOL\NORETHINDRONE ACETATE
  17. PLAQUENIL                          /00072602/ [Concomitant]
     Active Substance: HYDROXYCHLOROQUINE DIPHOSPHATE
  18. VITAMIN E                          /00110501/ [Concomitant]
     Active Substance: TOCOPHEROL
  19. FOLIC ACID. [Concomitant]
     Active Substance: FOLIC ACID
  20. CALCIUM CITRATE [Concomitant]
     Active Substance: CALCIUM CITRATE
  21. CYANOCOBALAMIN. [Concomitant]
     Active Substance: CYANOCOBALAMIN
  22. INDOMETHACIN                       /00003801/ [Concomitant]
     Active Substance: INDOMETHACIN
  23. KLONOPIN [Concomitant]
     Active Substance: CLONAZEPAM
  24. METHOTREXATE. [Concomitant]
     Active Substance: METHOTREXATE
  25. PAMELOR [Concomitant]
     Active Substance: NORTRIPTYLINE HYDROCHLORIDE
  26. NORTRIPTYLINE HCL [Concomitant]
     Active Substance: NORTRIPTYLINE HYDROCHLORIDE
  27. BENTYL [Concomitant]
     Active Substance: DICYCLOMINE HYDROCHLORIDE
  28. CYMBALTA [Concomitant]
     Active Substance: DULOXETINE HYDROCHLORIDE
  29. MVI                                /01825701/ [Concomitant]
     Active Substance: VITAMINS
  30. OPANA [Concomitant]
     Active Substance: OXYMORPHONE HYDROCHLORIDE
  31. XYREM [Suspect]
     Active Substance: SODIUM OXYBATE
     Dosage: 5 G, BID
     Route: 048
     Dates: start: 201012
  32. FLINTSTONES MULTIVITAMINS WITH IRON [Concomitant]
  33. GEODON [Concomitant]
     Active Substance: ZIPRASIDONE HYDROCHLORIDE\ZIPRASIDONE MESYLATE
  34. RITALIN [Concomitant]
     Active Substance: METHYLPHENIDATE HYDROCHLORIDE
  35. XYREM [Suspect]
     Active Substance: SODIUM OXYBATE
     Indication: NARCOLEPSY
     Dosage: 2.25 G, BID
     Route: 048
     Dates: start: 200901, end: 200902
  36. OXYMORPHONE HCL [Concomitant]
     Active Substance: OXYMORPHONE HYDROCHLORIDE
  37. XANAX [Concomitant]
     Active Substance: ALPRAZOLAM
  38. CELEBREX [Concomitant]
     Active Substance: CELECOXIB
  39. DOCUSATE [Concomitant]
     Active Substance: DOCUSATE
  40. VITAMIN D3 [Concomitant]
     Active Substance: CHOLECALCIFEROL
  41. DEPAKOTE [Concomitant]
     Active Substance: DIVALPROEX SODIUM
  42. FLONASE                            /00908302/ [Concomitant]
     Active Substance: MOMETASONE FUROATE
  43. ROXICET [Concomitant]
     Active Substance: ACETAMINOPHEN\OXYCODONE HYDROCHLORIDE
  44. TRILEPTAL [Concomitant]
     Active Substance: OXCARBAZEPINE

REACTIONS (1)
  - Tremor [Unknown]
